FAERS Safety Report 9145956 (Version 1)
Quarter: 2013Q1

REPORT INFORMATION
  Report Type: Spontaneous
  Country: US (occurrence: None)
  Receive Date: 20130227
  Receipt Date: 20130227
  Transmission Date: 20140127
  Serious: Yes (Other)
  Sender: FDA-Public Use
  Company Number: None

PATIENT
  Age: 68 Year
  Sex: 0

DRUGS (2)
  1. RITUXIMAB [Suspect]
     Dates: start: 20120712
  2. RITUXIMAB [Suspect]
     Dates: start: 20120726

REACTIONS (1)
  - Amaurosis fugax [None]
